FAERS Safety Report 8775532 (Version 2)
Quarter: 2012Q4

REPORT INFORMATION
  Report Type: 
  Country: FR (occurrence: FR)
  Receive Date: 20120910
  Receipt Date: 20120910
  Transmission Date: 20130627
  Serious: Yes (Hospitalization, Other)
  Sender: FDA-Public Use
  Company Number: FR-BRISTOL-MYERS SQUIBB COMPANY-16870834

PATIENT
  Age: 60 Year
  Sex: Male

DRUGS (8)
  1. TAXOL INJ [Suspect]
     Indication: LUNG ADENOCARCINOMA METASTATIC
     Dosage: 1 inj by week,3weeks by month
     Route: 042
     Dates: start: 20120612, end: 20120711
  2. PARACETAMOL [Suspect]
  3. IXPRIM [Suspect]
     Indication: BACK PAIN
     Dosage: Iprim(tramadol,p.mol)4/d(2 tabs in mor+2tabs in eve):06Jul12.
P.mol dose decreased 1g/1d at midnit.
     Route: 048
     Dates: start: 201207
  4. ACETAMINOPHEN\CAFFEINE\OPIUM [Suspect]
  5. NOVORAPID [Concomitant]
     Dosage: in the morning, 14 IU at midday and 16 IU in the evening
     Route: 058
  6. LANTUS [Concomitant]
     Indication: TYPE 1 DIABETES MELLITUS
     Route: 058
  7. LYRICA [Concomitant]
     Indication: DIABETIC NEUROPATHY
     Route: 058
  8. LEVEMIR [Concomitant]
     Dosage: in the morning

REACTIONS (9)
  - Malaise [Recovered/Resolved]
  - Loss of consciousness [Recovered/Resolved]
  - Chest pain [Recovered/Resolved]
  - Dyspnoea [Recovered/Resolved]
  - Hypertension [Recovered/Resolved]
  - Paraesthesia [Unknown]
  - Flushing [Unknown]
  - Hyperhidrosis [Unknown]
  - Palpitations [Unknown]
